FAERS Safety Report 17146633 (Version 2)
Quarter: 2024Q1

REPORT INFORMATION
  Report Type: Spontaneous
  Country: PL (occurrence: None)
  Receive Date: 20191212
  Receipt Date: 20240221
  Transmission Date: 20240409
  Serious: Yes (Other)
  Sender: FDA-Public Use
  Company Number: 2019SF75205

PATIENT
  Age: 43 Year
  Sex: Female

DRUGS (3)
  1. QUETIAPINE FUMARATE [Suspect]
     Active Substance: QUETIAPINE FUMARATE
     Route: 048
  2. QUETIAPINE FUMARATE [Suspect]
     Active Substance: QUETIAPINE FUMARATE
     Route: 048
  3. PRIDINOL [Suspect]
     Active Substance: PRIDINOL

REACTIONS (11)
  - Amenorrhoea [Unknown]
  - Speech disorder [Unknown]
  - Muscular weakness [Unknown]
  - Oliguria [Unknown]
  - Hypothermia [Unknown]
  - Constipation [Unknown]
  - Dizziness [Unknown]
  - Movement disorder [Unknown]
  - Vision blurred [Unknown]
  - Dyspnoea [Unknown]
  - High density lipoprotein decreased [Unknown]
